FAERS Safety Report 23906977 (Version 1)
Quarter: 2024Q2

REPORT INFORMATION
  Report Type: Report from Study
  Country: US (occurrence: US)
  Receive Date: 20240528
  Receipt Date: 20240528
  Transmission Date: 20240716
  Serious: Yes (Other)
  Sender: FDA-Public Use
  Company Number: US-GILEAD-2024-0670849

PATIENT
  Age: 69 Year
  Sex: Female

DRUGS (4)
  1. AMBRISENTAN [Suspect]
     Active Substance: AMBRISENTAN
     Indication: Pulmonary arterial hypertension
     Dosage: 10 MG, QD
     Route: 065
     Dates: start: 201509
  2. TREPROSTINIL DIOLAMINE [Suspect]
     Active Substance: TREPROSTINIL DIOLAMINE
     Indication: Pulmonary arterial hypertension
     Dosage: 0.75 MG, BID
     Route: 065
     Dates: start: 202105
  3. TREPROSTINIL DIOLAMINE [Suspect]
     Active Substance: TREPROSTINIL DIOLAMINE
     Dosage: 3.25 MG (1-2.5MG AND 3-0.25MG), BID
     Route: 065
     Dates: start: 202105
  4. ADCIRCA [Concomitant]
     Active Substance: TADALAFIL
     Indication: Pulmonary arterial hypertension
     Dosage: QD
     Dates: start: 202202

REACTIONS (8)
  - Syncope [Unknown]
  - Asthenia [Unknown]
  - Weight fluctuation [Unknown]
  - Dizziness [Unknown]
  - Headache [Unknown]
  - Weight decreased [Unknown]
  - Diarrhoea [Unknown]
  - Abdominal discomfort [Unknown]
